FAERS Safety Report 6332916-3 (Version None)
Quarter: 2009Q3

REPORT INFORMATION
  Report Type: 
  Country: None (occurrence: None)
  Receive Date: 20090828
  Receipt Date: 20090826
  Transmission Date: 20100115
  Serious: Yes (Life-Threatening, Other)
  Sender: FDA-Public Use
  Company Number: DE-JNJFOC-20090705568

PATIENT
  Age: 36 Year
  Sex: Female

DRUGS (4)
  1. RISPERDAL CONSTA [Suspect]
     Route: 030
  2. RISPERDAL CONSTA [Suspect]
     Indication: PSYCHOTIC DISORDER
     Route: 030
  3. LEVOMEPROMAZINE [Concomitant]
     Indication: SLEEP DISORDER
     Route: 065
  4. PROMETHAZINE [Concomitant]
     Route: 065

REACTIONS (1)
  - BREAST CANCER IN SITU [None]
